FAERS Safety Report 24054014 (Version 1)
Quarter: 2024Q3

REPORT INFORMATION
  Report Type: Spontaneous
  Country: IN (occurrence: None)
  Receive Date: 20240705
  Receipt Date: 20240705
  Transmission Date: 20241017
  Serious: Yes (Other)
  Sender: ASTRAZENECA
  Company Number: 2024A152293

PATIENT
  Age: 55 Year
  Sex: Male

DRUGS (1)
  1. FASENRA [Suspect]
     Active Substance: BENRALIZUMAB
     Dosage: UNKNOWN
     Route: 058

REACTIONS (1)
  - Eczema [Unknown]
